FAERS Safety Report 7562509-1 (Version None)
Quarter: 2011Q2

REPORT INFORMATION
  Report Type: 
  Country: None (occurrence: None)
  Receive Date: 20110622
  Receipt Date: 20110608
  Transmission Date: 20111010
  Serious: Yes (Other)
  Sender: FDA-Public Use
  Company Number: GB-RANBAXY-2009US-29085

PATIENT
  Age: 50 Year
  Sex: Male

DRUGS (5)
  1. ATORVASTATIN [Interacting]
     Indication: LIPIDS ABNORMAL
     Dosage: 40 MG, UNK
     Route: 065
  2. ROSIGLITAZONE [Interacting]
     Indication: PRODUCT USED FOR UNKNOWN INDICATION
     Dosage: 4 MG, UNK
     Route: 065
  3. SIMVASTATIN [Interacting]
     Indication: PRODUCT USED FOR UNKNOWN INDICATION
     Dosage: UNK, UNK
     Route: 065
  4. SIMVASTATIN [Interacting]
     Dosage: 80 MG, UNK
     Route: 065
  5. FENOFIBRATE [Suspect]
     Indication: LIPIDS ABNORMAL
     Dosage: 267 MG, UNK
     Route: 065

REACTIONS (2)
  - HIGH DENSITY LIPOPROTEIN DECREASED [None]
  - DRUG INTERACTION [None]
